FAERS Safety Report 6914832-9 (Version None)
Quarter: 2010Q3

REPORT INFORMATION
  Report Type: 
  Country: None (occurrence: None)
  Receive Date: 20100809
  Receipt Date: 20100730
  Transmission Date: 20110219
  Serious: Yes (Life-Threatening)
  Sender: FDA-Public Use
  Company Number: GXKR2010JP08603

PATIENT
  Age: 82 Year
  Sex: Male
  Weight: 75 kg

DRUGS (14)
  1. BICALUTAMIDE [Suspect]
     Indication: PROSTATE CANCER
     Dosage: 80 MG/DAY
     Route: 065
  2. DISOPYRAMIDE [Interacting]
     Indication: ARRHYTHMIA
     Dosage: 300 MG, UNK
     Route: 065
  3. BAKUMONDOUTO [Interacting]
     Indication: ASTHMA
     Dosage: 9 G/DAY CONTAINING 0.44 G/DAY OF KANZOU (LICORICE)
     Route: 065
  4. GLYCYRRHIZA EXTRACT [Interacting]
     Indication: OBESITY
     Dosage: 9.0 G/DAY OF BOFUTUSYOSAN (TSUMURA + CO.) CONTAINING 0.34 G/DAY OF KANZOU (LICORICE)
     Route: 065
  5. SILODOSIN [Interacting]
     Indication: BENIGN PROSTATIC HYPERPLASIA
     Dosage: 8 MG, UNK
     Route: 065
  6. GARENOXACIN [Interacting]
     Indication: PNEUMONIA BACTERIAL
     Dosage: 400 MG, BID
     Route: 048
  7. IMIDAPRIL HYDROCHLORIDE [Concomitant]
     Indication: HYPERTENSION
     Dosage: 5 MG/DAY
     Route: 065
  8. AMLODIPINE BESYLATE [Concomitant]
     Indication: HYPERTENSION
     Dosage: 5 MG/DAY
     Route: 048
  9. ISOSORBIDE MONONITRATE [Concomitant]
     Indication: ANGINA PECTORIS
     Dosage: 40 MG/DAY
     Route: 065
  10. PRAVASTATIN SODIUM [Concomitant]
     Indication: HYPERLIPIDAEMIA
     Dosage: 10 MG/DAY
     Route: 065
  11. FLUTOPRAZEPAM [Concomitant]
     Indication: DEPRESSION
     Dosage: 1 MG/DAY
     Route: 065
  12. CEFOZOPRAN HYDROCHLORIDE [Concomitant]
     Indication: PNEUMONIA BACTERIAL
     Dosage: 1 G, BID
     Route: 042
  13. OXYGEN [Concomitant]
     Dosage: 3 L/MIN
  14. SALINE [Concomitant]
     Dosage: 1500 ML, OF 1/3 SALINE
     Route: 041

REACTIONS (8)
  - DRUG INTERACTION [None]
  - ENDOTRACHEAL INTUBATION [None]
  - HYPOKALAEMIA [None]
  - LOSS OF CONSCIOUSNESS [None]
  - RESUSCITATION [None]
  - SPEECH DISORDER [None]
  - TORSADE DE POINTES [None]
  - VENTRICULAR TACHYCARDIA [None]
